FAERS Safety Report 25610905 (Version 1)
Quarter: 2025Q3

REPORT INFORMATION
  Report Type: Spontaneous
  Country: US (occurrence: US)
  Receive Date: 20250728
  Receipt Date: 20250728
  Transmission Date: 20251020
  Serious: Yes (Other)
  Sender: AMGEN
  Company Number: US-AMGEN-USASP2025142376

PATIENT

DRUGS (2)
  1. PREDNISONE [Suspect]
     Active Substance: PREDNISONE
     Indication: Warm autoimmune haemolytic anaemia
     Route: 048
  2. RITUXIMAB [Suspect]
     Active Substance: RITUXIMAB
     Indication: Warm autoimmune haemolytic anaemia
     Route: 065

REACTIONS (18)
  - Warm autoimmune haemolytic anaemia [Recovered/Resolved]
  - Splenectomy [Unknown]
  - Joint swelling [Unknown]
  - Adverse event [Unknown]
  - Hot flush [Unknown]
  - Fatigue [Unknown]
  - Emotional distress [Unknown]
  - Peripheral swelling [Unknown]
  - Muscle spasms [Unknown]
  - Tremor [Unknown]
  - Off label use [Unknown]
  - Product dose omission issue [Unknown]
  - Somnolence [Unknown]
  - Product communication issue [Unknown]
  - Mood swings [Unknown]
  - Nausea [Unknown]
  - Hyperhidrosis [Unknown]
  - Insomnia [Unknown]
